FAERS Safety Report 6216799-8 (Version None)
Quarter: 2009Q2

REPORT INFORMATION
  Report Type: 
  Country: None (occurrence: None)
  Receive Date: 20090605
  Receipt Date: 20090528
  Transmission Date: 20091009
  Serious: Yes (Other)
  Sender: FDA-Public Use
  Company Number: JP-ABBOTT-09P-087-0575708-00

PATIENT
  Sex: Female
  Weight: 48 kg

DRUGS (7)
  1. HUMIRA [Suspect]
     Indication: RHEUMATOID ARTHRITIS
     Route: 058
     Dates: start: 20090507, end: 20090507
  2. ISCOTIN [Concomitant]
     Indication: ANTIBIOTIC PROPHYLAXIS
     Dates: start: 20090407, end: 20090520
  3. HYPEN [Concomitant]
     Indication: RHEUMATOID ARTHRITIS
     Dates: start: 20090407
  4. STRONG ADEROXIN POWDER [Concomitant]
     Indication: PROPHYLAXIS
     Dates: start: 20090415, end: 20090520
  5. STRONG ADEROXIN POWDER [Concomitant]
     Indication: ADVERSE REACTION
  6. METOLATE [Concomitant]
     Indication: RHEUMATOID ARTHRITIS
     Dates: start: 20090507, end: 20090516
  7. FOLIAMIN [Concomitant]
     Indication: VITAMIN SUPPLEMENTATION
     Dates: start: 20090507, end: 20090517

REACTIONS (1)
  - TOXIC SKIN ERUPTION [None]
